FAERS Safety Report 12394771 (Version 2)
Quarter: 2016Q2

REPORT INFORMATION
  Report Type: Spontaneous
  Country: GB (occurrence: GB)
  Receive Date: 20160523
  Receipt Date: 20160616
  Transmission Date: 20160815
  Serious: No
  Sender: FDA-Public Use
  Company Number: GB-ELI_LILLY_AND_COMPANY-GB201605004702

PATIENT
  Age: 65 Year
  Sex: Male
  Weight: 97 kg

DRUGS (16)
  1. TOUJEO [Suspect]
     Active Substance: INSULIN GLARGINE
     Indication: DIABETES MELLITUS
     Dosage: 126 U, QD
     Route: 058
     Dates: start: 20160331, end: 20160517
  2. ASPIRIN                            /00002701/ [Concomitant]
     Active Substance: ASPIRIN
     Dosage: 1 DF, EACH MORNING
  3. DIGOXIN. [Concomitant]
     Active Substance: DIGOXIN
     Dosage: 1 DF, EACH MORNING
  4. EPLERENONE. [Concomitant]
     Active Substance: EPLERENONE
     Dosage: 1 DF, EACH MORNING
  5. ATORVASTATIN [Concomitant]
     Active Substance: ATORVASTATIN
     Dosage: 1 DF, EACH EVENING
  6. TRADJENTA [Concomitant]
     Active Substance: LINAGLIPTIN
     Dosage: 1 DF, EACH EVENING
  7. BUMETANIDE. [Concomitant]
     Active Substance: BUMETANIDE
     Dosage: 2 DF, TID
  8. CITALOPRAM [Concomitant]
     Active Substance: CITALOPRAM HYDROBROMIDE
     Dosage: 1 DF, EACH MORNING
  9. ALLOPURINOL. [Concomitant]
     Active Substance: ALLOPURINOL
     Dosage: 1 DF, QD
  10. OMEPRAZOLE. [Concomitant]
     Active Substance: OMEPRAZOLE
     Dosage: 1 DF, QD
  11. RAMIPRIL. [Concomitant]
     Active Substance: RAMIPRIL
     Dosage: 1 DF, BID
  12. WARFARIN [Concomitant]
     Active Substance: WARFARIN
     Dosage: UNK UNK, PRN
  13. HUMALOG [Suspect]
     Active Substance: INSULIN LISPRO
     Indication: DIABETES MELLITUS
     Dosage: 43 U, TID
     Route: 058
     Dates: start: 20160331, end: 20160517
  14. CHEMYDUR [Concomitant]
     Dosage: 1 DF, EACH MORNING
  15. IVABRADINE [Concomitant]
     Active Substance: IVABRADINE
     Dosage: .5 DF, TID
  16. TEMAZEPAM. [Concomitant]
     Active Substance: TEMAZEPAM
     Dosage: 1 DF, EACH EVENING

REACTIONS (2)
  - Oedema [Not Recovered/Not Resolved]
  - Joint swelling [Not Recovered/Not Resolved]

NARRATIVE: CASE EVENT DATE: 20160402
